FAERS Safety Report 6624639-8 (Version None)
Quarter: 2010Q1

REPORT INFORMATION
  Report Type: 
  Country: None (occurrence: None)
  Receive Date: 20100305
  Receipt Date: 20100222
  Transmission Date: 20100710
  Serious: Yes (Hospitalization)
  Sender: FDA-Public Use
  Company Number: IT-2010-0112

PATIENT
  Age: 83 Year
  Sex: Male

DRUGS (2)
  1. NAVELBINE [Suspect]
     Indication: LYMPHOMA
     Dosage: 25 MG/M2 IV
     Route: 042
     Dates: start: 20090618, end: 20090702
  2. DELTACORTENE [Concomitant]

REACTIONS (8)
  - ALANINE AMINOTRANSFERASE INCREASED [None]
  - ASTHENIA [None]
  - CHOLECYSTITIS ACUTE [None]
  - ESCHERICHIA SEPSIS [None]
  - IRRITABILITY [None]
  - KLEBSIELLA SEPSIS [None]
  - LEUKOPENIA [None]
  - LYMPHADENOPATHY [None]
